FAERS Safety Report 23161406 (Version 5)
Quarter: 2023Q4

REPORT INFORMATION
  Report Type: Report from Study
  Country: LV (occurrence: LV)
  Receive Date: 20231108
  Receipt Date: 20231117
  Transmission Date: 20240110
  Serious: Yes (Life-Threatening, Hospitalization, Disabling, Other)
  Sender: FDA-Public Use
  Company Number: LV-009507513-2310LVA000636

PATIENT
  Age: 51 Year
  Sex: Male
  Weight: 83 kg

DRUGS (13)
  1. SACITUZUMAB GOVITECAN-HZIY [Suspect]
     Active Substance: SACITUZUMAB GOVITECAN-HZIY
     Indication: Non-small cell lung cancer metastatic
     Dosage: 10 MILLIGRAM/KILOGRAM, ON DAYS 1 AND 8 Q3W
     Route: 042
     Dates: start: 20230704, end: 20230926
  2. PEMBROLIZUMAB [Suspect]
     Active Substance: PEMBROLIZUMAB
     Indication: Non-small cell lung cancer metastatic
     Dosage: 200 MILLIGRAM, Q3W
     Route: 042
     Dates: start: 20230704, end: 20230926
  3. METFORMIN [Concomitant]
     Active Substance: METFORMIN HYDROCHLORIDE
     Indication: Diabetes mellitus
     Dosage: [1]  1700 MG DAILY, FREQ: BID
     Route: 048
     Dates: start: 20180101
  4. AMLODIPINE BESYLATE\PERINDOPRIL ERBUMINE [Concomitant]
     Active Substance: AMLODIPINE BESYLATE\PERINDOPRIL ERBUMINE
     Indication: Hypertension
     Route: 048
     Dates: start: 20130101
  5. NEBIVOLOL [Concomitant]
     Active Substance: NEBIVOLOL
     Indication: Hypertension
     Dates: start: 20130101
  6. NEBIVOLOL [Concomitant]
     Active Substance: NEBIVOLOL
     Dosage: [3]  5 MG DAILY, FREQ: QD
     Route: 048
     Dates: start: 20130101
  7. HJERTEMAGNYL [ACETYLSALICYLIC ACID;MAGNESIUM OXIDE] [Concomitant]
     Indication: Arteriosclerosis
     Dosage: [6]  75 MG DAILY, FREQ: QD
     Dates: start: 20230705
  8. INSULINUM GLARGINUM [Concomitant]
     Indication: Diabetes mellitus inadequate control
     Dosage: 18 INTERNATIONAL UNIT, QD
     Route: 058
     Dates: start: 20230718
  9. INSULINUM ASPARTUM [Concomitant]
     Indication: Diabetes mellitus inadequate control
     Dosage: [8]  10 IU DAILY, PRN
     Route: 058
     Dates: start: 20230718
  10. CHLOROPYRAMINE [Concomitant]
     Active Substance: CHLOROPYRAMINE
     Indication: Premedication
     Dosage: UNK
     Dates: start: 20230926, end: 20230926
  11. ONDANSETRON [Concomitant]
     Active Substance: ONDANSETRON
     Indication: Premedication
     Dosage: UNK
     Dates: start: 20230926, end: 20230926
  12. DEXAMETHASONE [Concomitant]
     Active Substance: DEXAMETHASONE
     Indication: Premedication
     Dosage: UNK
     Dates: start: 20230926, end: 20230926
  13. FAMOTIDINE [Concomitant]
     Active Substance: FAMOTIDINE
     Indication: Premedication
     Dosage: UNK
     Dates: start: 20230926, end: 20230926

REACTIONS (3)
  - Brain injury [Not Recovered/Not Resolved]
  - Diabetic ketoacidosis [Recovered/Resolved]
  - Hyperglycaemia [Recovered/Resolved]

NARRATIVE: CASE EVENT DATE: 20230930
